FAERS Safety Report 13504840 (Version 1)
Quarter: 2017Q2

REPORT INFORMATION
  Report Type: Spontaneous
  Country: US (occurrence: US)
  Receive Date: 20170502
  Receipt Date: 20170502
  Transmission Date: 20170830
  Serious: No
  Sender: FDA-Public Use
  Company Number: US-IMPAX LABORATORIES, INC-2017-IPXL-00436

PATIENT
  Sex: Female
  Weight: 72 kg

DRUGS (3)
  1. RYTARY [Suspect]
     Active Substance: CARBIDOPA\LEVODOPA
     Indication: PARKINSON^S DISEASE
     Dosage: UNK
     Route: 048
     Dates: start: 201605
  2. CARBIDOPA-LEVODOPA ODT [Suspect]
     Active Substance: CARBIDOPA\LEVODOPA
     Indication: PARKINSON^S DISEASE
     Dosage: 25/100MG, HALF OR ONE PILL  TO ONE OF THE FOUR DOSES OF RYTARY
     Route: 048
  3. RYTARY [Suspect]
     Active Substance: CARBIDOPA\LEVODOPA
     Dosage: 36.25/145 MG 1 CAPSULE 4 TIMES A DAY
     Route: 048

REACTIONS (4)
  - Tremor [Unknown]
  - Anxiety [Unknown]
  - Intentional underdose [Unknown]
  - Stress [Unknown]
